FAERS Safety Report 11956890 (Version 2)
Quarter: 2016Q4

REPORT INFORMATION
  Report Type: Report from Study
  Country: GB (occurrence: GB)
  Receive Date: 20160126
  Receipt Date: 20161111
  Transmission Date: 20170206
  Serious: Yes (Death, Other)
  Sender: FDA-Public Use
  Company Number: GB-AMAG PHARMACEUTICALS, INC.-AMAG201500435

PATIENT

DRUGS (4)
  1. RIENSO [Suspect]
     Active Substance: FERUMOXYTOL
     Indication: IMAGING PROCEDURE
     Dosage: 9 ML, UNK
     Route: 042
     Dates: start: 20130115, end: 20130115
  2. RIENSO [Suspect]
     Active Substance: FERUMOXYTOL
     Dosage: 9.1 ML, UNK
     Route: 042
     Dates: start: 20140107, end: 20140107
  3. BUSCOPAN [Concomitant]
     Active Substance: BUTYLSCOPOLAMINE BROMIDE
     Dosage: 20 UNK, UNK
     Route: 042
     Dates: start: 20140107, end: 20140108
  4. BUSCOPAN [Concomitant]
     Active Substance: BUTYLSCOPOLAMINE BROMIDE
     Indication: PRODUCT USED FOR UNKNOWN INDICATION
     Dosage: 20 MG, UNK
     Route: 042
     Dates: start: 20130115, end: 20130116

REACTIONS (2)
  - Aortic aneurysm rupture [Fatal]
  - Lung cancer metastatic [Unknown]

NARRATIVE: CASE EVENT DATE: 20150312
